FAERS Safety Report 9817120 (Version 1)
Quarter: 2014Q1

REPORT INFORMATION
  Report Type: Spontaneous
  Country: JP (occurrence: JP)
  Receive Date: 20140114
  Receipt Date: 20140114
  Transmission Date: 20141002
  Serious: Yes (Hospitalization)
  Sender: FDA-Public Use
  Company Number: PHHY2014JP001920

PATIENT
  Age: 69 Year
  Sex: Male

DRUGS (11)
  1. VALPROIC ACID [Suspect]
     Indication: GRAND MAL CONVULSION
     Dosage: 400 MG, PER DAY
  2. VALPROIC ACID [Suspect]
     Dosage: 600 MG, PER DAY
  3. CLONAZEPAM [Suspect]
     Indication: ABNORMAL BEHAVIOUR
     Dosage: 1 MG, PER DAY
  4. TOPIRAMATE [Suspect]
     Indication: ALCOHOLISM
  5. DIAZEPAM [Suspect]
     Dosage: 10 MG, PER DAY
  6. DIAZEPAM [Suspect]
     Dosage: 2.5 MG, PER DAY
  7. DIAZEPAM [Suspect]
     Dosage: 5 MG, PER DAY
  8. DIAZEPAM [Suspect]
     Dosage: 20 MG,
     Route: 041
  9. SULPIRIDE [Concomitant]
     Indication: COGNITIVE DISORDER
     Dosage: 150 MG, PER DAY
  10. DONEPEZIL [Concomitant]
     Indication: COGNITIVE DISORDER
     Dosage: 5 MG, (3-5MG PER DAY)
  11. DONEPEZIL [Concomitant]
     Dosage: 5 MG, PER DAY

REACTIONS (6)
  - Road traffic accident [Unknown]
  - Grand mal convulsion [Recovered/Resolved]
  - Incorrect drug administration duration [Unknown]
  - Bradycardia [Unknown]
  - Delirium [Unknown]
  - Drug ineffective [Unknown]
